FAERS Safety Report 4810275-2 (Version None)
Quarter: 2005Q4

REPORT INFORMATION
  Report Type: 
  Country: None (occurrence: None)
  Receive Date: 20051024
  Receipt Date: 20051013
  Transmission Date: 20060501
  Serious: Yes (Hospitalization, Other)
  Sender: FDA-Public Use
  Company Number: 200513424GDS

PATIENT
  Age: 74 Year
  Sex: Male

DRUGS (2)
  1. ASPIRIN [Suspect]
     Dosage: 300 MG, TOTAL DAILY, ORAL
     Route: 048
     Dates: end: 20050831
  2. GALANTAMINE HYDROBROMIDE [Concomitant]

REACTIONS (6)
  - APHASIA [None]
  - CENTRAL NERVOUS SYSTEM LESION [None]
  - CEREBRAL HAEMORRHAGE [None]
  - CONFUSIONAL STATE [None]
  - HEADACHE [None]
  - HYPERTENSIVE CRISIS [None]
